FAERS Safety Report 25350928 (Version 5)
Quarter: 2025Q3

REPORT INFORMATION
  Report Type: Report from Study
  Country: CO (occurrence: CO)
  Receive Date: 20250523
  Receipt Date: 20250929
  Transmission Date: 20251021
  Serious: Yes (Life-Threatening, Other)
  Sender: TAKEDA
  Company Number: CO-TAKEDA-2025TUS048646

PATIENT
  Age: 29 Year
  Sex: Male
  Weight: 68 kg

DRUGS (4)
  1. ADVATE [Suspect]
     Active Substance: ANTIHEMOPHILIC FACTOR, HUMAN RECOMBINANT
     Indication: Factor VIII deficiency
  2. ADVATE [Suspect]
     Active Substance: ANTIHEMOPHILIC FACTOR, HUMAN RECOMBINANT
  3. ADVATE [Suspect]
     Active Substance: ANTIHEMOPHILIC FACTOR, HUMAN RECOMBINANT
  4. ADVATE [Suspect]
     Active Substance: ANTIHEMOPHILIC FACTOR, HUMAN RECOMBINANT

REACTIONS (11)
  - Coagulopathy [Unknown]
  - Haemorrhage [Recovered/Resolved]
  - Haemarthrosis [Recovered/Resolved]
  - Injury [Recovered/Resolved]
  - Compartment syndrome [Unknown]
  - Haematoma [Unknown]
  - Pain [Recovered/Resolved]
  - Inflammation [Recovered/Resolved]
  - Pain in extremity [Recovering/Resolving]
  - Induration [Unknown]
  - Coagulation factor VIII level decreased [Unknown]

NARRATIVE: CASE EVENT DATE: 20220101
